FAERS Safety Report 7703257-4 (Version None)
Quarter: 2011Q3

REPORT INFORMATION
  Report Type: 
  Country: None (occurrence: None)
  Receive Date: 20110817
  Receipt Date: 20110811
  Transmission Date: 20111222
  Serious: Yes (Hospitalization)
  Sender: FDA-Public Use
  Company Number: WAES 1107DEU00080

PATIENT
  Age: 78 Year
  Sex: Female

DRUGS (4)
  1. TRIAMTERENE AND HYDROCHLOROTHIAZIDE [Concomitant]
  2. LEVOTHYROXINE SODIUM [Concomitant]
  3. CAP VORINOSTAT [Suspect]
     Indication: SARCOMA METASTATIC
     Dosage: 400 MG/DAILY
     Route: 048
     Dates: start: 20110622, end: 20110718
  4. ATENOLOL [Concomitant]

REACTIONS (1)
  - APHASIA [None]
